FAERS Safety Report 13589849 (Version 1)
Quarter: 2017Q2

REPORT INFORMATION
  Report Type: Spontaneous
  Country: IT (occurrence: IT)
  Receive Date: 20170530
  Receipt Date: 20170530
  Transmission Date: 20170830
  Serious: Yes (Other)
  Sender: FDA-Public Use
  Company Number: PHHY2017IT078546

PATIENT
  Sex: Male

DRUGS (1)
  1. TEGRETOL [Suspect]
     Active Substance: CARBAMAZEPINE
     Indication: EPILEPSY
     Dosage: 200 MG, TID
     Route: 048

REACTIONS (4)
  - Paraphilia [Unknown]
  - Periarthritis [Unknown]
  - Erectile dysfunction [Unknown]
  - Penile size reduced [Unknown]
